FAERS Safety Report 25271938 (Version 1)
Quarter: 2025Q2

REPORT INFORMATION
  Report Type: Spontaneous
  Country: JP (occurrence: JP)
  Receive Date: 20250506
  Receipt Date: 20250506
  Transmission Date: 20250716
  Serious: Yes (Life-Threatening, Hospitalization, Other)
  Sender: MARKSANS PHARMA LIMITED
  Company Number: JP-MARKSANS PHARMA LIMITED-MPL202500046

PATIENT

DRUGS (1)
  1. IBUPROFEN [Suspect]
     Active Substance: IBUPROFEN
     Indication: Product used for unknown indication
     Route: 065

REACTIONS (2)
  - Obliterative bronchiolitis [Not Recovered/Not Resolved]
  - Toxic epidermal necrolysis [Recovered/Resolved]
